FAERS Safety Report 24431881 (Version 2)
Quarter: 2024Q4

REPORT INFORMATION
  Report Type: Spontaneous
  Country: FR (occurrence: FR)
  Receive Date: 20241014
  Receipt Date: 20241112
  Transmission Date: 20250114
  Serious: Yes (Other)
  Sender: AUROBINDO
  Company Number: FR-AFSSAPS-ST2024001480

PATIENT
  Age: 41 Year
  Sex: Female

DRUGS (12)
  1. CEFUROXIME [Suspect]
     Active Substance: CEFUROXIME
     Indication: General anaesthesia
     Dosage: UNK
     Route: 042
     Dates: start: 202010, end: 202010
  2. SUFENTANIL CITRATE [Suspect]
     Active Substance: SUFENTANIL CITRATE
     Indication: General anaesthesia
     Dosage: UNK
     Route: 042
     Dates: start: 202010, end: 202010
  3. KETAMINE [Suspect]
     Active Substance: KETAMINE
     Indication: General anaesthesia
     Dosage: UNK
     Route: 042
     Dates: start: 202010, end: 202010
  4. DEXAMETHASONE [Suspect]
     Active Substance: DEXAMETHASONE
     Indication: General anaesthesia
     Dosage: UNK
     Route: 042
     Dates: start: 202010, end: 202011
  5. DIPRIVAN [Suspect]
     Active Substance: PROPOFOL
     Indication: General anaesthesia
     Dosage: UNK
     Route: 042
     Dates: start: 202010, end: 202010
  6. SEVOFLURANE [Suspect]
     Active Substance: SEVOFLURANE
     Indication: General anaesthesia
     Dosage: UNK
     Route: 042
     Dates: start: 202010, end: 202010
  7. TRACRIUM [Suspect]
     Active Substance: ATRACURIUM BESYLATE
     Indication: General anaesthesia
     Dosage: UNK
     Route: 042
     Dates: start: 202010, end: 202010
  8. ACUPAN [Suspect]
     Active Substance: NEFOPAM HYDROCHLORIDE
     Indication: General anaesthesia
     Dosage: UNK
     Route: 042
     Dates: start: 202010, end: 202010
  9. TRANEXAMIC ACID [Suspect]
     Active Substance: TRANEXAMIC ACID
     Indication: General anaesthesia
     Dosage: UNK
     Route: 042
     Dates: start: 202010, end: 202010
  10. ATRACURIUM [Suspect]
     Active Substance: ATRACURIUM
     Indication: Product used for unknown indication
     Route: 065
  11. XYLOCAINE [Concomitant]
     Active Substance: LIDOCAINE HYDROCHLORIDE
     Indication: General anaesthesia
     Dosage: UNK
     Route: 042
     Dates: start: 202010, end: 202010
  12. PERFALGAN [Concomitant]
     Active Substance: ACETAMINOPHEN
     Indication: General anaesthesia
     Dosage: UNK
     Route: 042
     Dates: start: 202010, end: 202010

REACTIONS (2)
  - Erythema [Recovered/Resolved]
  - Hypotension [Recovered/Resolved]

NARRATIVE: CASE EVENT DATE: 20201001
